FAERS Safety Report 8073048-6 (Version None)
Quarter: 2012Q1

REPORT INFORMATION
  Report Type: 
  Country: None (occurrence: None)
  Receive Date: 20120126
  Receipt Date: 20120118
  Transmission Date: 20120608
  Serious: Yes (Hospitalization)
  Sender: FDA-Public Use
  Company Number: US-BAXTER-2011BH037762

PATIENT
  Sex: Female

DRUGS (1)
  1. DIANEAL [Suspect]
     Indication: PERITONEAL DIALYSIS
     Route: 033
     Dates: end: 20111220

REACTIONS (4)
  - PERITONITIS BACTERIAL [None]
  - PERIPHERAL VASCULAR DISORDER [None]
  - PERITONEAL DIALYSIS COMPLICATION [None]
  - IMPAIRED HEALING [None]
